FAERS Safety Report 13328019 (Version 1)
Quarter: 2017Q1

REPORT INFORMATION
  Report Type: Spontaneous
  Country: US (occurrence: US)
  Receive Date: 20170313
  Receipt Date: 20170313
  Transmission Date: 20170428
  Serious: No
  Sender: FDA-Public Use
  Company Number: US-JNJFOC-20170211799

PATIENT
  Age: 74 Year
  Sex: Female
  Weight: 48.99 kg

DRUGS (2)
  1. MENS ROGAINE EXTRA STRENGTH [Suspect]
     Active Substance: MINOXIDIL
     Route: 061
  2. MENS ROGAINE EXTRA STRENGTH [Suspect]
     Active Substance: MINOXIDIL
     Indication: ALOPECIA
     Dosage: SQUIRT ON SCALP
     Route: 061

REACTIONS (4)
  - Inappropriate schedule of drug administration [Recovered/Resolved]
  - Product use issue [Unknown]
  - Intentional product misuse [Unknown]
  - Pruritus [Recovered/Resolved]
